FAERS Safety Report 9449622 (Version 1)
Quarter: 2013Q3

REPORT INFORMATION
  Report Type: Spontaneous
  Country: US (occurrence: US)
  Receive Date: 20130809
  Receipt Date: 20130809
  Transmission Date: 20140515
  Serious: Yes (Other)
  Sender: FDA-Public Use
  Company Number: US-PFIZER INC-2013230252

PATIENT
  Age: 50 Year
  Sex: Female

DRUGS (13)
  1. BUTRANS [Suspect]
     Indication: PAIN
     Dosage: 10 MCG/HR, WEEKLY
     Route: 062
     Dates: start: 20130606, end: 20130612
  2. LIDOCAINE [Concomitant]
     Dosage: UNK
  3. PRILOCAINE [Concomitant]
     Dosage: UNK
  4. TOPIRAMATE [Concomitant]
     Dosage: UNK
  5. MELOXICAM [Concomitant]
     Dosage: UNK
  6. HYDROCODONE W/ACETAMINOPHEN [Concomitant]
     Dosage: UNK
  7. AMPYRA [Concomitant]
     Dosage: UNK
  8. TIZANIDINE HYDROCHLORIDE [Concomitant]
     Dosage: UNK
  9. VILAZODONE HYDROCHLORIDE [Concomitant]
     Dosage: UNK
  10. ROBINUL [Concomitant]
     Dosage: UNK
  11. BETASERON [Concomitant]
     Dosage: UNK
  12. GLUCOSAMINE HYDROCHLORIDE/CHONDROITIN SULFATE [Concomitant]
     Dosage: UNK
  13. NORCO [Concomitant]
     Dosage: UNK

REACTIONS (11)
  - Hemiparesis [Unknown]
  - Application site burn [Unknown]
  - Application site erythema [Unknown]
  - Drug effect decreased [Unknown]
  - Headache [Unknown]
  - Back pain [Unknown]
  - Micturition urgency [Unknown]
  - Defaecation urgency [Unknown]
  - Musculoskeletal pain [Unknown]
  - Neck pain [Unknown]
  - Skin burning sensation [Unknown]
